FAERS Safety Report 15150484 (Version 3)
Quarter: 2018Q3

REPORT INFORMATION
  Report Type: Spontaneous
  Country: IE (occurrence: IE)
  Receive Date: 20180716
  Receipt Date: 20180729
  Transmission Date: 20181010
  Serious: Yes (Hospitalization)
  Sender: FDA-Public Use
  Company Number: IE-TEVA-2018-IE-895931

PATIENT
  Age: 93 Year
  Sex: Male

DRUGS (4)
  1. NEURONTIN [Suspect]
     Active Substance: GABAPENTIN
     Indication: NEURALGIA
     Dosage: 100MG DAILY FOR TWO WEEKS
     Route: 065
  2. BRIEKA [Concomitant]
     Indication: NEURALGIA
     Dosage: MOSTLY AT NIGHT, TAKES ONE OR TWO.
     Route: 065
  3. NEURONTIN [Suspect]
     Active Substance: GABAPENTIN
     Route: 065
  4. NEURONTIN [Suspect]
     Active Substance: GABAPENTIN
     Dosage: 100 MILLIGRAM DAILY;
     Route: 065

REACTIONS (6)
  - Rash [Not Recovered/Not Resolved]
  - Drug ineffective [Unknown]
  - Pruritus [Recovered/Resolved]
  - Dermatitis [Unknown]
  - Eczema asteatotic [Unknown]
  - Feeling abnormal [Not Recovered/Not Resolved]
